FAERS Safety Report 6116957-7 (Version None)
Quarter: 2009Q1

REPORT INFORMATION
  Report Type: 
  Country: None (occurrence: None)
  Receive Date: 20090314
  Receipt Date: 20081229
  Transmission Date: 20090719
  Serious: No
  Sender: FDA-Public Use
  Company Number: US-ABBOTT-08P-163-0495220-00

PATIENT
  Sex: Female
  Weight: 70.824 kg

DRUGS (3)
  1. HUMIRA [Suspect]
     Indication: WEGENER'S GRANULOMATOSIS
     Route: 058
     Dates: start: 20080601
  2. HUMIRA [Suspect]
     Indication: RHEUMATOID ARTHRITIS
  3. PREDNISONE [Concomitant]
     Indication: RHEUMATOID ARTHRITIS
     Route: 048
     Dates: start: 20060101

REACTIONS (1)
  - INCORRECT DOSE ADMINISTERED [None]
